FAERS Safety Report 9573769 (Version 1)
Quarter: 2013Q4

REPORT INFORMATION
  Report Type: Spontaneous
  Country: DE (occurrence: DE)
  Receive Date: 20131001
  Receipt Date: 20131001
  Transmission Date: 20140711
  Serious: Yes (Life-Threatening, Hospitalization, Other)
  Sender: FDA-Public Use
  Company Number: DE-PFIZER INC-2013276138

PATIENT
  Age: 82 Year
  Sex: Male

DRUGS (7)
  1. IBUPROFEN [Suspect]
     Indication: ARTHRALGIA
     Dosage: 600 MG, 3X/DAY
     Route: 048
  2. PRADAXA [Suspect]
     Indication: ATRIAL FIBRILLATION
     Dosage: 110 MG, 2X/DAY
     Route: 048
  3. RAMIPRIL [Concomitant]
     Dosage: 2.5 MG, 1X/DAY
     Route: 048
  4. PANTOZOL 40 [Concomitant]
     Dosage: 40 MG, 1X/DAY
     Route: 048
  5. TOREM 5 [Concomitant]
     Indication: TRICUSPID VALVE INCOMPETENCE
     Dosage: 5 MG, (2 IN THE MORNING AND 1 IN THE NOON)
     Route: 048
  6. SIMVA 40 [Concomitant]
     Dosage: 40 MG, 1X/DAY
     Route: 048
  7. PULMICORT 200 [Concomitant]
     Dosage: UNK
     Route: 055

REACTIONS (2)
  - Lower gastrointestinal haemorrhage [Recovering/Resolving]
  - Rectal ulcer haemorrhage [Unknown]
